FAERS Safety Report 6133779-1 (Version None)
Quarter: 2009Q1

REPORT INFORMATION
  Report Type: 
  Country: None (occurrence: None)
  Receive Date: 20090326
  Receipt Date: 20090316
  Transmission Date: 20090719
  Serious: Yes (Other)
  Sender: FDA-Public Use
  Company Number: GB-PFIZER INC-2009186473

PATIENT

DRUGS (1)
  1. CHAMPIX [Suspect]
     Dosage: UNKNOWN
     Route: 048
     Dates: start: 20090212, end: 20090304

REACTIONS (5)
  - DYSPEPSIA [None]
  - HOT FLUSH [None]
  - PARANOIA [None]
  - RASH [None]
  - SWOLLEN TONGUE [None]
